FAERS Safety Report 26147832 (Version 1)
Quarter: 2025Q4

REPORT INFORMATION
  Report Type: Spontaneous
  Country: GB (occurrence: GB)
  Receive Date: 20251212
  Receipt Date: 20251212
  Transmission Date: 20260118
  Serious: No
  Sender: ALKEM
  Company Number: None

PATIENT
  Age: 32 Year
  Sex: Male

DRUGS (3)
  1. VARENICLINE [Suspect]
     Active Substance: VARENICLINE
     Indication: Smoking cessation therapy
     Dosage: 0.5 MILLIGRAM, OD
     Route: 065
     Dates: start: 20251013
  2. VARENICLINE [Suspect]
     Active Substance: VARENICLINE
     Dosage: 0.5 MILLIGRAM, BID (INCREASED DOSE)
     Route: 065
     Dates: start: 20251016
  3. ESOMEPRAZOLE [Concomitant]
     Active Substance: ESOMEPRAZOLE
     Indication: Product used for unknown indication
     Dosage: UNK
     Route: 065

REACTIONS (4)
  - Blister [Recovering/Resolving]
  - Rash [Recovered/Resolved]
  - Rash [Recovering/Resolving]
  - Pruritus [Recovered/Resolved]

NARRATIVE: CASE EVENT DATE: 20251017
